FAERS Safety Report 10615317 (Version 2)
Quarter: 2015Q2

REPORT INFORMATION
  Report Type: Spontaneous
  Country: US (occurrence: US)
  Receive Date: 20141201
  Receipt Date: 20150529
  Transmission Date: 20150821
  Serious: Yes (Other)
  Sender: FDA-Public Use
  Company Number: US-PFIZER INC-2014324896

PATIENT
  Age: 59 Year
  Sex: Male
  Weight: 95.24 kg

DRUGS (1)
  1. LIPITOR [Suspect]
     Active Substance: ATORVASTATIN CALCIUM
     Indication: LOW DENSITY LIPOPROTEIN INCREASED
     Dosage: 40 MG, UNK
     Route: 048
     Dates: start: 201311

REACTIONS (6)
  - Bladder injury [Unknown]
  - Urinary bladder haemorrhage [Unknown]
  - Pain [Unknown]
  - Atrial fibrillation [Unknown]
  - Muscle disorder [Unknown]
  - Feeling abnormal [Unknown]

NARRATIVE: CASE EVENT DATE: 2013
